FAERS Safety Report 8261678-8 (Version None)
Quarter: 2012Q2

REPORT INFORMATION
  Report Type: 
  Country: None (occurrence: None)
  Receive Date: 20120405
  Receipt Date: 20120405
  Transmission Date: 20120825
  Serious: Yes (Hospitalization)
  Sender: FDA-Public Use
  Company Number: None

PATIENT
  Age: 19 Year
  Sex: Female
  Weight: 41.5 kg

DRUGS (1)
  1. GAMUNEX [Suspect]
     Dosage: 40 GRAM
     Route: 042
     Dates: start: 20120329, end: 20120329

REACTIONS (5)
  - INTRAVASCULAR HAEMOLYSIS [None]
  - DISSEMINATED INTRAVASCULAR COAGULATION [None]
  - RED BLOOD CELL ABNORMALITY [None]
  - MICROANGIOPATHIC HAEMOLYTIC ANAEMIA [None]
  - INJURY [None]
